FAERS Safety Report 9860599 (Version 2)
Quarter: 2014Q1

REPORT INFORMATION
  Report Type: Spontaneous
  Country: FR (occurrence: FR)
  Receive Date: 20140202
  Receipt Date: 20140202
  Transmission Date: 20141002
  Serious: Yes (Other)
  Sender: FDA-Public Use
  Company Number: FR-ALLERGAN-1216317US

PATIENT
  Age: 66 Year
  Sex: Female

DRUGS (9)
  1. BOTOX [Suspect]
     Indication: TORTICOLLIS
     Dosage: 100 UNITS, SINGLE
     Route: 030
     Dates: start: 20120704, end: 20120704
  2. BOTOX [Suspect]
     Dosage: UNK
     Dates: start: 20120228, end: 20120228
  3. BOTOX [Suspect]
     Dosage: UNK
     Dates: start: 20111019, end: 20111019
  4. BOTOX [Suspect]
     Dosage: UNK
     Dates: start: 20110616, end: 20110616
  5. BOTOX [Suspect]
     Dosage: UNK
     Dates: start: 20110223, end: 20110223
  6. BOTOX [Suspect]
     Dosage: 220 UNITS, SINGLE
     Dates: start: 20101013, end: 20101013
  7. BOTOX [Suspect]
     Dosage: UNK
     Dates: start: 20100625, end: 20100625
  8. BOTOX [Suspect]
     Dosage: UNK
     Dates: start: 20100323, end: 20100323
  9. DYSPORT [Suspect]
     Indication: PRODUCT USED FOR UNKNOWN INDICATION
     Dosage: 2.5 ML, SINGLE
     Dates: start: 20120704, end: 20120704

REACTIONS (3)
  - Dysphonia [Recovering/Resolving]
  - Dysphagia [Recovering/Resolving]
  - Weight decreased [Recovering/Resolving]
